FAERS Safety Report 24444928 (Version 2)
Quarter: 2024Q4

REPORT INFORMATION
  Report Type: Report from Study
  Country: US (occurrence: US)
  Receive Date: 20241016
  Receipt Date: 20241017
  Transmission Date: 20250115
  Serious: No
  Sender: ROCHE
  Company Number: US-ROCHE-2855736

PATIENT
  Age: 27 Year
  Sex: Female

DRUGS (13)
  1. RITUXAN [Suspect]
     Active Substance: RITUXIMAB
     Indication: Lupus nephritis
     Dosage: 2 DOSES INFUSE EVERY 2 WEEKS; 2 DOSE.
     Route: 041
     Dates: start: 20230824
  2. RITUXAN [Suspect]
     Active Substance: RITUXIMAB
     Indication: Nephrotic syndrome
  3. RITUXAN [Suspect]
     Active Substance: RITUXIMAB
     Indication: Glomerulonephritis proliferative
  4. MYCOPHENOLATE MOFETIL [Suspect]
     Active Substance: MYCOPHENOLATE MOFETIL
     Indication: Lupus nephritis
     Route: 065
  5. MYCOPHENOLATE MOFETIL [Suspect]
     Active Substance: MYCOPHENOLATE MOFETIL
     Indication: Nephrotic syndrome
  6. MYCOPHENOLATE MOFETIL [Suspect]
     Active Substance: MYCOPHENOLATE MOFETIL
     Indication: Glomerulonephritis proliferative
  7. BUMEX [Concomitant]
     Active Substance: BUMETANIDE
  8. CHOLECALCIFEROL [Concomitant]
     Active Substance: CHOLECALCIFEROL
  9. FOLVITE [Concomitant]
     Active Substance: FOLIC ACID
  10. NEURONTIN [Concomitant]
     Active Substance: GABAPENTIN
  11. PLAQUENIL [Concomitant]
     Active Substance: HYDROXYCHLOROQUINE SULFATE
  12. KEPPRA [Concomitant]
     Active Substance: LEVETIRACETAM
  13. COZAAR [Concomitant]
     Active Substance: LOSARTAN POTASSIUM

REACTIONS (2)
  - Off label use [Unknown]
  - No adverse event [Unknown]
